FAERS Safety Report 9891591 (Version 1)
Quarter: 2014Q1

REPORT INFORMATION
  Report Type: Spontaneous
  Country: US (occurrence: None)
  Receive Date: 20140210
  Receipt Date: 20140210
  Transmission Date: 20141002
  Serious: Yes (Other)
  Sender: FDA-Public Use
  Company Number: ADR-2014-00200

PATIENT
  Age: 42 Year
  Sex: Female

DRUGS (1)
  1. BACLOFEN INTRATHECAL [Suspect]
     Indication: HEAD INJURY

REACTIONS (4)
  - Fatigue [None]
  - Pain [None]
  - Fall [None]
  - Clavicle fracture [None]
